FAERS Safety Report 23474291 (Version 1)
Quarter: 2024Q1

REPORT INFORMATION
  Report Type: Report from Study
  Country: US (occurrence: US)
  Receive Date: 20240204
  Receipt Date: 20240204
  Transmission Date: 20240410
  Serious: Yes (Hospitalization)
  Sender: FDA-Public Use
  Company Number: US-EXELIXIS-CABO-23060727

PATIENT
  Age: 61 Year
  Sex: Female
  Weight: 80.726 kg

DRUGS (1)
  1. CABOMETYX [Suspect]
     Active Substance: CABOZANTINIB S-MALATE
     Indication: Renal cancer
     Dosage: 20 MG, QD
     Route: 048
     Dates: start: 20230104

REACTIONS (4)
  - Syncope [Unknown]
  - Dehydration [Unknown]
  - Blood pressure abnormal [Unknown]
  - Malnutrition [Unknown]

NARRATIVE: CASE EVENT DATE: 20230101
